FAERS Safety Report 25034704 (Version 1)
Quarter: 2025Q1

REPORT INFORMATION
  Report Type: Spontaneous
  Country: US (occurrence: US)
  Receive Date: 20250304
  Receipt Date: 20250304
  Transmission Date: 20250409
  Serious: No
  Sender: BOEHRINGER INGELHEIM
  Company Number: US-BoehringerIngelheim-2025-BI-012707

PATIENT
  Age: 73 Year
  Sex: Female

DRUGS (1)
  1. SPIRIVA RESPIMAT [Suspect]
     Active Substance: TIOTROPIUM BROMIDE
     Indication: Asthma

REACTIONS (6)
  - Rhinorrhoea [Not Recovered/Not Resolved]
  - Sneezing [Unknown]
  - Nasal congestion [Not Recovered/Not Resolved]
  - Sinus congestion [Unknown]
  - Throat irritation [Not Recovered/Not Resolved]
  - Cough [Unknown]

NARRATIVE: CASE EVENT DATE: 20241201
